FAERS Safety Report 19011195 (Version 9)
Quarter: 2023Q1

REPORT INFORMATION
  Report Type: Report from Study
  Country: CA (occurrence: CA)
  Receive Date: 20210316
  Receipt Date: 20230323
  Transmission Date: 20230418
  Serious: Yes (Death, Hospitalization, Other)
  Sender: FDA-Public Use
  Company Number: NVSC2021CA053862

PATIENT
  Age: 72 Year
  Sex: Male

DRUGS (6)
  1. SANDOSTATIN [Suspect]
     Active Substance: OCTREOTIDE ACETATE
     Indication: Carcinoid tumour
     Dosage: 1 UG, BID (FOR TWO WEEKS THEN START LAR)
     Route: 058
     Dates: start: 20210108, end: 202101
  2. SANDOSTATIN [Suspect]
     Active Substance: OCTREOTIDE ACETATE
  3. SANDOSTATIN [Suspect]
     Active Substance: OCTREOTIDE ACETATE
  4. SANDOSTATIN LAR DEPOT [Suspect]
     Active Substance: OCTREOTIDE ACETATE
     Indication: Carcinoid tumour
     Dosage: 20 MG, Q4W
     Route: 030
     Dates: start: 20210125
  5. SANDOSTATIN LAR DEPOT [Suspect]
     Active Substance: OCTREOTIDE ACETATE
     Dosage: 30 MG, Q15 DAYS
     Route: 030
     Dates: start: 20210125
  6. SANDOSTATIN LAR DEPOT [Suspect]
     Active Substance: OCTREOTIDE ACETATE
     Dosage: 50 MG, Q15 DAYS
     Route: 030
     Dates: start: 20210125

REACTIONS (10)
  - Death [Fatal]
  - Pneumonia [Recovered/Resolved]
  - Dyspnoea [Unknown]
  - Malignant neoplasm progression [Unknown]
  - Carcinoid tumour [Unknown]
  - General physical health deterioration [Unknown]
  - Asthenia [Unknown]
  - Dyspnoea exertional [Unknown]
  - Incorrect dose administered [Unknown]
  - Inappropriate schedule of product administration [Unknown]

NARRATIVE: CASE EVENT DATE: 20210220
